FAERS Safety Report 10505315 (Version 1)
Quarter: 2014Q3

REPORT INFORMATION
  Report Type: Spontaneous
  Country: US (occurrence: None)
  Receive Date: 20140926
  Receipt Date: 20140926
  Transmission Date: 20150326
  Serious: No
  Sender: FDA-Public Use
  Company Number: 1000069325

PATIENT
  Age: 84 Year
  Sex: Male

DRUGS (3)
  1. IRON [Concomitant]
     Active Substance: IRON
  2. METOPROLOL [Concomitant]
     Active Substance: METOPROLOL
  3. LINZESS [Suspect]
     Active Substance: LINACLOTIDE
     Indication: CONSTIPATION
     Dates: start: 20140721

REACTIONS (1)
  - Erection increased [None]

NARRATIVE: CASE EVENT DATE: 20140723
